FAERS Safety Report 4537203-1 (Version None)
Quarter: 2004Q4

REPORT INFORMATION
  Report Type: 
  Country: None (occurrence: None)
  Receive Date: 20041223
  Receipt Date: 20041220
  Transmission Date: 20050328
  Serious: Yes (Other)
  Sender: FDA-Public Use
  Company Number: PHBS2004IT17100

PATIENT
  Age: 38 Year
  Sex: Male

DRUGS (3)
  1. CYCLOSPORINE [Suspect]
     Indication: BEHCET'S SYNDROME
     Dosage: 3 MG/KG/D
  2. CYCLOSPORINE [Suspect]
     Dosage: 4 MG/KG/D
  3. PREDNISONE TAB [Suspect]
     Dosage: 50 MG/D TAPERED

REACTIONS (6)
  - APHTHOUS STOMATITIS [None]
  - DIABETES MELLITUS INSULIN-DEPENDENT [None]
  - ERYTHEMA NODOSUM [None]
  - EYE INFLAMMATION [None]
  - MACULAR HOLE [None]
  - RETINAL NEOVASCULARISATION [None]
